FAERS Safety Report 21006706 (Version 1)
Quarter: 2022Q2

REPORT INFORMATION
  Report Type: Spontaneous
  Country: FR (occurrence: FR)
  Receive Date: 20220625
  Receipt Date: 20220625
  Transmission Date: 20220720
  Serious: Yes (Other)
  Sender: FDA-Public Use
  Company Number: None

PATIENT
  Age: 43 Year
  Sex: Male

DRUGS (9)
  1. RAMIPRIL [Suspect]
     Active Substance: RAMIPRIL
     Indication: Endocarditis
     Dosage: UNIT DOSE: 1.25 MG, FREQUENCY : 1 DAYS, FUMAFER 66 MG,
     Route: 048
     Dates: start: 202203, end: 20220518
  2. BISOPROLOL FUMARATE [Concomitant]
     Active Substance: BISOPROLOL FUMARATE
     Indication: Endocarditis
     Dosage: UNIT DOSE: 1.25 MG, FREQUENCY : 1 DAYS
     Route: 048
  3. EPLERENONE [Concomitant]
     Active Substance: EPLERENONE
     Indication: Endocarditis
     Dosage: UNIT DOSE: 25 MG, FREQUENCY : 1 DAYS
     Route: 048
  4. DOLIPRANE [Concomitant]
     Active Substance: ACETAMINOPHEN
     Indication: Pain
     Dosage: UNIT DOSE: 1 DF
     Route: 048
  5. DIAZEPAM [Concomitant]
     Active Substance: DIAZEPAM
     Indication: Product used for unknown indication
     Dosage: UNIT DOSE: 1 MG, FREQUENCY : 1 DAYS
     Route: 048
  6. FERROUS FUMARATE [Concomitant]
     Active Substance: FERROUS FUMARATE
     Indication: Iron deficiency anaemia
     Dosage: UNIT DOSE: 2 DF, FREQUENCY : 1 DAYS
     Route: 048
  7. KARDEGIC [Concomitant]
     Active Substance: ASPIRIN DL-LYSINE
     Indication: Cardiovascular event prophylaxis
     Dosage: KARDEGIC 75 MG, POWDER FOR ORAL SOLUTION IN SACHET, UNIT DOSE: 1 DF, FREQUENCY TIME  : 1 DAYS
     Route: 048
  8. FOLIC ACID [Concomitant]
     Active Substance: FOLIC ACID
     Indication: Vitamin supplementation
     Dosage: UNIT DOSE: 1 DF, FREQUENCY : 1 DAYS
     Route: 048
  9. WARFARIN SODIUM [Concomitant]
     Active Substance: WARFARIN SODIUM
     Indication: Cardiac valve prosthesis user
     Dosage: COUMADINE 2 MG, SCORED TABLET.UNIT DOSE: 2 DF, FREQUENCY : 1 DAYS
     Route: 048

REACTIONS (1)
  - Neutropenia [Recovering/Resolving]

NARRATIVE: CASE EVENT DATE: 20220511
